FAERS Safety Report 5720859-5 (Version None)
Quarter: 2008Q2

REPORT INFORMATION
  Report Type: 
  Country: None (occurrence: None)
  Receive Date: 20080429
  Receipt Date: 20070829
  Transmission Date: 20081010
  Serious: No
  Sender: FDA-Public Use
  Company Number: A0677830A

PATIENT
  Sex: Female

DRUGS (1)
  1. SEREVENT [Suspect]
     Indication: DRUG USE FOR UNKNOWN INDICATION
     Route: 065

REACTIONS (1)
  - HEART RATE INCREASED [None]
